FAERS Safety Report 19189440 (Version 1)
Quarter: 2021Q2

REPORT INFORMATION
  Report Type: Spontaneous
  Country: US (occurrence: US)
  Receive Date: 20210428
  Receipt Date: 20210428
  Transmission Date: 20210717
  Serious: Yes (Life-Threatening)
  Sender: FDA-Public Use
  Company Number: None

PATIENT
  Age: 62 Year
  Sex: Male
  Weight: 65.32 kg

DRUGS (2)
  1. LISINOPRIL (LISINOPRIL 10MG TAB) [Suspect]
     Active Substance: LISINOPRIL
     Indication: HYPERTENSION
     Dates: start: 20210101, end: 20210101
  2. CLONIDINE (CLONIDINE HCL 0.2MG TAB) [Suspect]
     Active Substance: CLONIDINE HYDROCHLORIDE
     Indication: HYPERTENSION
     Dates: start: 20201231, end: 20201231

REACTIONS (8)
  - Dry mouth [None]
  - Angioedema [None]
  - Lip swelling [None]
  - Swelling face [None]
  - Anaphylactic reaction [None]
  - Paraesthesia oral [None]
  - Swollen tongue [None]
  - Tongue biting [None]
